FAERS Safety Report 7419400-0 (Version None)
Quarter: 2011Q2

REPORT INFORMATION
  Report Type: 
  Country: None (occurrence: None)
  Receive Date: 20110416
  Receipt Date: 20110413
  Transmission Date: 20111010
  Serious: Yes (Life-Threatening, Other)
  Sender: FDA-Public Use
  Company Number: CH-PFIZER INC-2009193454

PATIENT
  Age: 91 Year
  Sex: Female
  Weight: 48 kg

DRUGS (16)
  1. TORASEM-MEPHA [Interacting]
     Dosage: 10 MG, 2X/DAY
     Route: 048
     Dates: start: 20081215, end: 20090203
  2. FOLVITE [Concomitant]
     Dosage: 5 MG, UNK
     Route: 048
     Dates: start: 20081219, end: 20090201
  3. CALCIMAGON [Concomitant]
     Dosage: 1 G, 1X/DAY
     Route: 048
     Dates: start: 20081219, end: 20090203
  4. BACTRIM [Suspect]
     Dosage: 400 MG, 2X/DAY
     Route: 048
     Dates: start: 20090106, end: 20090114
  5. DISTRANEURIN [Concomitant]
     Dosage: 384 MG, 1X/DAY
     Route: 048
  6. VANCOMYCIN HCL [Interacting]
     Dosage: 250 MG, 4X/DAY
     Dates: start: 20090123, end: 20090130
  7. TOLVON [Concomitant]
     Dosage: 15 MG, 1X/DAY
     Route: 048
     Dates: start: 20090206
  8. DAFALGAN [Suspect]
     Dosage: 1000 MG, 3X/DAY
     Route: 048
     Dates: start: 20081219, end: 20090121
  9. SEROQUEL [Concomitant]
     Dosage: 6.25 MG, 2X/DAY
     Route: 048
     Dates: start: 20090130
  10. EUTHYROX [Concomitant]
     Dosage: 100 UG, 1X/DAY
  11. ZOLOFT [Suspect]
     Dosage: 25 MG, UNK
     Route: 048
     Dates: start: 20090114, end: 20090208
  12. CLEXANE [Concomitant]
     Dosage: 20 MG, 1X/DAY
     Route: 058
     Dates: start: 20081219, end: 20081231
  13. ALDACTONE [Interacting]
     Dosage: 12.5 MG, 1X/DAY
     Route: 048
     Dates: start: 20081219, end: 20090225
  14. CO-AMOXI [Interacting]
     Dosage: 1200 MG, 2X/DAY
     Route: 042
     Dates: start: 20081230, end: 20090106
  15. METRONIDAZOLE [Concomitant]
     Dosage: 250 MG, 4X/DAY
     Route: 048
     Dates: start: 20090116, end: 20090122
  16. ENALAPRIL MALEATE [Interacting]
     Dosage: 2.5 MG, 2X/DAY
     Route: 048
     Dates: start: 20081216, end: 20081230

REACTIONS (2)
  - RENAL FAILURE [None]
  - DRUG INTERACTION [None]
